FAERS Safety Report 5471778-3 (Version None)
Quarter: 2007Q3

REPORT INFORMATION
  Report Type: 
  Country: None (occurrence: None)
  Receive Date: 20070928
  Receipt Date: 20070518
  Transmission Date: 20080115
  Serious: No
  Sender: FDA-Public Use
  Company Number: US-BRISTOL-MYERS SQUIBB COMPANY-13785712

PATIENT
  Sex: Female

DRUGS (3)
  1. DEFINITY [Suspect]
     Route: 042
     Dates: start: 20070518, end: 20070518
  2. PROPANOL [Concomitant]
  3. OMEGA 3 FISH OIL [Concomitant]

REACTIONS (1)
  - BACK PAIN [None]
